FAERS Safety Report 20582796 (Version 1)
Quarter: 2022Q1

REPORT INFORMATION
  Report Type: Spontaneous
  Country: US (occurrence: US)
  Receive Date: 20220311
  Receipt Date: 20220311
  Transmission Date: 20220423
  Serious: No
  Sender: FDA-Public Use
  Company Number: US-BEH-2022143146

PATIENT
  Age: 68 Year
  Sex: Male

DRUGS (1)
  1. PRIVIGEN [Suspect]
     Active Substance: HUMAN IMMUNOGLOBULIN G
     Indication: Polyneuropathy
     Dosage: 80 GRAM, QMT
     Route: 042
     Dates: start: 202003

REACTIONS (4)
  - Abdominal pain upper [Unknown]
  - Vomiting [Unknown]
  - No adverse event [Unknown]
  - Off label use [Unknown]

NARRATIVE: CASE EVENT DATE: 20220301
